FAERS Safety Report 18568993 (Version 1)
Quarter: 2020Q4

REPORT INFORMATION
  Report Type: Spontaneous
  Country: US (occurrence: US)
  Receive Date: 20201201
  Receipt Date: 20201201
  Transmission Date: 20210114
  Serious: No
  Sender: FDA-Public Use
  Company Number: None

PATIENT

DRUGS (1)
  1. AUBAGIO [Suspect]
     Active Substance: TERIFLUNOMIDE

REACTIONS (5)
  - Feeling abnormal [None]
  - Adverse event [None]
  - Therapy cessation [None]
  - Disease recurrence [None]
  - Road traffic accident [None]
